FAERS Safety Report 23994060 (Version 1)
Quarter: 2024Q2

REPORT INFORMATION
  Report Type: Spontaneous
  Country: US (occurrence: None)
  Receive Date: 20240618
  Receipt Date: 20240618
  Transmission Date: 20240716
  Serious: No
  Sender: FDA-Public Use
  Company Number: None

PATIENT
  Age: 71 Year
  Sex: Female

DRUGS (4)
  1. KETOCONAZOLE [Suspect]
     Active Substance: KETOCONAZOLE
     Indication: Seborrhoeic dermatitis
     Dates: start: 202311
  2. KETOCONAZOLE [Suspect]
     Active Substance: KETOCONAZOLE
     Indication: Psoriasis
  3. ZORYVE [Suspect]
     Active Substance: ROFLUMILAST
     Indication: Seborrhoeic dermatitis
     Dosage: APPLY TO  AFFECTED AREA(S)  ONCE DAILY AS DIRECTED.?
     Dates: start: 202405
  4. ZORYVE [Suspect]
     Active Substance: ROFLUMILAST
     Indication: Psoriasis

REACTIONS (1)
  - Hip arthroplasty [None]
